FAERS Safety Report 23035738 (Version 2)
Quarter: 2023Q4

REPORT INFORMATION
  Report Type: Spontaneous
  Country: US (occurrence: US)
  Receive Date: 20231006
  Receipt Date: 20231012
  Transmission Date: 20240110
  Serious: Yes (Hospitalization)
  Sender: FDA-Public Use
  Company Number: US-BEH-2023163605

PATIENT
  Age: 59 Year
  Sex: Male

DRUGS (5)
  1. HIZENTRA [Suspect]
     Active Substance: HUMAN IMMUNOGLOBULIN G
     Indication: Immunodeficiency common variable
     Dosage: 17 GRAM, QW
     Route: 058
  2. CEPHALEXIN [Concomitant]
     Active Substance: CEPHALEXIN
  3. CLONAZEPAM [Concomitant]
     Active Substance: CLONAZEPAM
  4. GABAPENTIN [Concomitant]
     Active Substance: GABAPENTIN
  5. ZOLOFT [Concomitant]
     Active Substance: SERTRALINE HYDROCHLORIDE

REACTIONS (13)
  - Fall [Unknown]
  - Asthenia [Unknown]
  - Fall [Unknown]
  - Fall [Unknown]
  - Head injury [Unknown]
  - Nausea [Unknown]
  - Vertigo [Unknown]
  - Fall [Unknown]
  - Incontinence [Unknown]
  - Concussion [Unknown]
  - Contusion [Unknown]
  - No adverse event [Unknown]
  - Product dose omission issue [Unknown]

NARRATIVE: CASE EVENT DATE: 20230701
